FAERS Safety Report 26028360 (Version 1)
Quarter: 2025Q4

REPORT INFORMATION
  Report Type: Spontaneous
  Country: CA (occurrence: CA)
  Receive Date: 20251111
  Receipt Date: 20251111
  Transmission Date: 20260117
  Serious: Yes (Hospitalization, Other)
  Sender: ASCEND THERAPEUTICS US, LLC
  Company Number: CA-Ascend Therapeutics US, LLC-2188338

PATIENT
  Age: 75 Year
  Sex: Female
  Weight: 70 kg

DRUGS (3)
  1. ESTROGEL [Suspect]
     Active Substance: ESTRADIOL
     Indication: Menopausal symptoms
  2. ESTROGEL [Suspect]
     Active Substance: ESTRADIOL
     Indication: Arthralgia
  3. ESTROGEL [Suspect]
     Active Substance: ESTRADIOL

REACTIONS (8)
  - Epidermal necrosis [Recovered/Resolved]
  - Product use in unapproved indication [Recovered/Resolved]
  - Off label use [Recovered/Resolved]
  - Toxic epidermal necrolysis [Recovered/Resolved]
  - Rash papular [Recovered/Resolved]
  - Rash erythematous [Recovered/Resolved]
  - Nikolsky^s sign positive [Recovered/Resolved]
  - Haemoglobin decreased [Recovered/Resolved]
